FAERS Safety Report 6038778-6 (Version None)
Quarter: 2009Q1

REPORT INFORMATION
  Report Type: 
  Country: None (occurrence: None)
  Receive Date: 20090115
  Receipt Date: 20080424
  Transmission Date: 20090719
  Serious: No
  Sender: FDA-Public Use
  Company Number: US-ABBOTT-08P-163-0448742-00

PATIENT
  Sex: Male
  Weight: 68.1 kg

DRUGS (2)
  1. ADVICOR [Suspect]
     Indication: INTERMITTENT CLAUDICATION
     Dosage: 500/20MG ONCE A DAY AT NIGHT
     Route: 048
     Dates: start: 20070101
  2. LISINOPRIL [Concomitant]
     Indication: BLOOD PRESSURE

REACTIONS (1)
  - FLUSHING [None]
